FAERS Safety Report 18625582 (Version 2)
Quarter: 2021Q1

REPORT INFORMATION
  Report Type: Spontaneous
  Country: GB (occurrence: GB)
  Receive Date: 20201216
  Receipt Date: 20210113
  Transmission Date: 20210419
  Serious: Yes (Other)
  Sender: FDA-Public Use
  Company Number: GB-BAUSCH-BL-2020-037100

PATIENT
  Age: 34 Year
  Sex: Female

DRUGS (4)
  1. BUDESONIDE. [Suspect]
     Active Substance: BUDESONIDE
     Indication: OFF LABEL USE
  2. BUDESONIDE. [Suspect]
     Active Substance: BUDESONIDE
     Indication: PRODUCT USE IN UNAPPROVED INDICATION
  3. BUDESONIDE. [Suspect]
     Active Substance: BUDESONIDE
     Indication: AUTOIMMUNE HEPATITIS
     Dosage: 6/9 MG (ALTERNATE DAYS)
     Route: 065
  4. AZATHIOPRINE. [Concomitant]
     Active Substance: AZATHIOPRINE
     Indication: PRODUCT USED FOR UNKNOWN INDICATION

REACTIONS (4)
  - Maternal exposure during pregnancy [Unknown]
  - Product use in unapproved indication [Unknown]
  - Gestational diabetes [Unknown]
  - Off label use [Unknown]
